FAERS Safety Report 5656656-9 (Version None)
Quarter: 2008Q1

REPORT INFORMATION
  Report Type: 
  Country: None (occurrence: None)
  Receive Date: 20080219
  Receipt Date: 20071206
  Transmission Date: 20080703
  Serious: No
  Sender: FDA-Public Use
  Company Number: WAES 0712USA02188

PATIENT
  Age: 65 Year
  Sex: Male
  Weight: 89.8122 kg

DRUGS (9)
  1. JANUVIA [Suspect]
     Indication: TYPE 2 DIABETES MELLITUS
     Dosage: 100 MG/DAILY/PO
     Route: 048
     Dates: start: 20070601, end: 20071206
  2. CIALIS [Concomitant]
  3. DILTIAZEM CD [Concomitant]
  4. DIOVAN HCT [Concomitant]
  5. LANTUS [Concomitant]
  6. PNEUMOVAX (PNEUMOCOCCAL 14V POLY [Concomitant]
  7. VYTORIN [Concomitant]
  8. GLIPIZIDE [Concomitant]
  9. METFORMIN HCL [Concomitant]

REACTIONS (2)
  - GASTRITIS [None]
  - RASH [None]
